FAERS Safety Report 23351646 (Version 1)
Quarter: 2023Q4

REPORT INFORMATION
  Report Type: Spontaneous
  Country: PK (occurrence: PK)
  Receive Date: 20231229
  Receipt Date: 20231229
  Transmission Date: 20240110
  Serious: Yes (Death)
  Sender: FDA-Public Use
  Company Number: PK-CYCLE PHARMACEUTICALS LTD-2023-CYC-000119

PATIENT

DRUGS (1)
  1. NITISINONE [Suspect]
     Active Substance: NITISINONE
     Indication: Product used for unknown indication
     Route: 065

REACTIONS (1)
  - Death [Fatal]
